FAERS Safety Report 20861336 (Version 1)
Quarter: 2022Q2

REPORT INFORMATION
  Report Type: Spontaneous
  Country: VN (occurrence: VN)
  Receive Date: 20220523
  Receipt Date: 20220523
  Transmission Date: 20220720
  Serious: Yes (Death)
  Sender: FDA-Public Use
  Company Number: VN-002147023-NVSC2022VN108023

PATIENT

DRUGS (1)
  1. RUXOLITINIB [Suspect]
     Active Substance: RUXOLITINIB
     Indication: Myelofibrosis
     Dosage: 10 MG, BID
     Route: 065

REACTIONS (2)
  - Myelofibrosis [Fatal]
  - Malignant neoplasm progression [Fatal]
